FAERS Safety Report 16195891 (Version 3)
Quarter: 2020Q4

REPORT INFORMATION
  Report Type: Other
  Country: DE (occurrence: DE)
  Receive Date: 20190415
  Receipt Date: 20201022
  Transmission Date: 20210113
  Serious: Yes (Other)
  Sender: FDA-Public Use
  Company Number: DE-ROCHE-2301023

PATIENT

DRUGS (1)
  1. ALTEPLASE. [Suspect]
     Active Substance: ALTEPLASE
     Indication: LACUNAR INFARCTION
     Dosage: UP TO A MAXIMUM OF 90 MG, 10% AS BOLUS, 90% OVER 1 HOUR AS INFUSION
     Route: 042

REACTIONS (1)
  - Atrial fibrillation [Unknown]
